FAERS Safety Report 6431163-4 (Version None)
Quarter: 2009Q4

REPORT INFORMATION
  Report Type: 
  Country: None (occurrence: None)
  Receive Date: 20091105
  Receipt Date: 20091105
  Transmission Date: 20100525
  Serious: Yes (Other)
  Sender: FDA-Public Use
  Company Number: None

PATIENT
  Sex: Female
  Weight: 3.1752 kg

DRUGS (1)
  1. GENTAK [Suspect]
     Indication: PROPHYLAXIS
     Dosage: 1 STRIP ON THE EYE X 1 OPHTHALMIC OINTMENT
     Route: 047
     Dates: start: 20091030

REACTIONS (6)
  - APPLICATION SITE DISCHARGE [None]
  - APPLICATION SITE IRRITATION [None]
  - APPLICATION SITE SCAB [None]
  - APPLICATION SITE SWELLING [None]
  - APPLICATION SITE VESICLES [None]
  - INSTILLATION SITE ERYTHEMA [None]
